FAERS Safety Report 7102016-3 (Version None)
Quarter: 2010Q4

REPORT INFORMATION
  Report Type: 
  Country: None (occurrence: None)
  Receive Date: 20101115
  Receipt Date: 20101101
  Transmission Date: 20110411
  Serious: Yes (Other)
  Sender: FDA-Public Use
  Company Number: US-ROCHE-718949

PATIENT
  Sex: Male
  Weight: 83.9 kg

DRUGS (1)
  1. ACCUTANE [Suspect]
     Indication: ACNE
     Route: 065
     Dates: start: 19880101, end: 19920101

REACTIONS (13)
  - ARTHRITIS [None]
  - COLITIS ULCERATIVE [None]
  - COLONIC POLYP [None]
  - CROHN'S DISEASE [None]
  - FISTULA [None]
  - GASTROINTESTINAL INJURY [None]
  - HAEMOLYTIC ANAEMIA [None]
  - INFLAMMATORY BOWEL DISEASE [None]
  - INTESTINAL HAEMORRHAGE [None]
  - INTESTINAL OBSTRUCTION [None]
  - IRON DEFICIENCY ANAEMIA [None]
  - IRRITABLE BOWEL SYNDROME [None]
  - POUCHITIS [None]
